FAERS Safety Report 4817949-8 (Version None)
Quarter: 2005Q4

REPORT INFORMATION
  Report Type: 
  Country: None (occurrence: None)
  Receive Date: 20051102
  Receipt Date: 20051027
  Transmission Date: 20060501
  Serious: Yes (Death)
  Sender: FDA-Public Use
  Company Number: US-JNJFOC-20051006090

PATIENT
  Age: 56 Year
  Sex: Male

DRUGS (4)
  1. DURAGESIC-100 [Suspect]
     Route: 062
  2. DURAGESIC-100 [Suspect]
     Route: 062
  3. PERCOCET [Concomitant]
  4. PERCOCET [Concomitant]
     Indication: PAIN

REACTIONS (1)
  - RESPIRATORY FAILURE [None]
